FAERS Safety Report 7918806-0 (Version None)
Quarter: 2011Q4

REPORT INFORMATION
  Report Type: 
  Country: None (occurrence: None)
  Receive Date: 20111116
  Receipt Date: 20111104
  Transmission Date: 20120403
  Serious: Yes (Hospitalization)
  Sender: FDA-Public Use
  Company Number: US-PFIZER INC-2011189788

PATIENT
  Sex: Male
  Weight: 106.6 kg

DRUGS (13)
  1. FENOFIBRATE [Concomitant]
     Indication: BLOOD CHOLESTEROL
     Dosage: 120 MG, 1X/DAY
     Route: 048
     Dates: start: 20080101
  2. IMIPRAMINE [Concomitant]
     Indication: DEPRESSION
     Dosage: 50 MG, 4 PO AT BEDTIME
     Route: 048
     Dates: start: 20080101
  3. SUNITINIB MALATE [Suspect]
     Indication: RENAL CELL CARCINOMA
     Dosage: 37.5 MG, 1X/DAY, SCHEDULE 4/2
     Route: 048
     Dates: start: 20101102, end: 20110809
  4. KLONOPIN [Concomitant]
     Indication: DEPRESSION
     Dosage: 0.5 MG, 2X/DAY
     Route: 048
     Dates: start: 20080101, end: 20110803
  5. RISPERIDONE [Concomitant]
     Indication: ANXIETY
     Dosage: 0.5 MG, 2X/DAY
     Route: 048
     Dates: start: 20110622
  6. LAMICTAL [Suspect]
     Indication: DEPRESSION
     Dosage: 25 MG, 1X/DAY
     Route: 048
     Dates: start: 20110804, end: 20110814
  7. VIIBRYD [Suspect]
     Indication: DEPRESSION
     Dosage: 10-20 MG, 1X/DAY
     Dates: start: 20110713, end: 20110728
  8. AMBIEN [Concomitant]
     Indication: INSOMNIA
     Dosage: 10 MG, 1X/DAY, AT BEDTIME
     Route: 048
     Dates: start: 20080101
  9. BACLOFEN [Concomitant]
     Indication: MUSCLE RELAXANT THERAPY
     Dosage: 20 MG, 3X/DAY
     Route: 048
     Dates: start: 20110310
  10. PERCOCET [Concomitant]
     Indication: PAIN
     Dosage: 10.325 MG, 2X/DAY
     Route: 048
     Dates: start: 20090101
  11. KLONOPIN [Concomitant]
     Dosage: 0.5 MG, 1X/DAY
     Dates: start: 20110804
  12. RITALIN [Concomitant]
     Indication: ATTENTION DEFICIT/HYPERACTIVITY DISORDER
     Dosage: 20 MG, 3-4 PILLS DAILY
     Route: 048
     Dates: start: 20080101, end: 20110722
  13. MIRTAZAPINE [Concomitant]
     Indication: DEPRESSION
     Dosage: 15 MG, 1X/DAY
     Route: 048
     Dates: start: 20110622

REACTIONS (1)
  - MENTAL STATUS CHANGES [None]
